FAERS Safety Report 22520631 (Version 3)
Quarter: 2023Q2

REPORT INFORMATION
  Report Type: Spontaneous
  Country: HU (occurrence: HU)
  Receive Date: 20230605
  Receipt Date: 20230612
  Transmission Date: 20230721
  Serious: Yes (Hospitalization)
  Sender: FDA-Public Use
  Company Number: HU-KRKA-HU2023K06494LIT

PATIENT
  Age: 22 Year
  Sex: Female

DRUGS (17)
  1. ENOXAPARIN [Suspect]
     Active Substance: ENOXAPARIN
     Indication: Blood pressure abnormal
     Dosage: 0.6 ML SUBCUTANEOUS ENOXAPARIN SODIUM
     Route: 058
  2. ENOXAPARIN [Suspect]
     Active Substance: ENOXAPARIN
     Indication: Heart rate abnormal
  3. AMLODIPINE [Suspect]
     Active Substance: AMLODIPINE BESYLATE
     Indication: Blood pressure abnormal
     Dosage: 5 MILLIGRAM, QD
     Route: 048
  4. AMLODIPINE [Suspect]
     Active Substance: AMLODIPINE BESYLATE
     Indication: Heart rate abnormal
     Dosage: 5 MG, PER DAY AT NIGHT
     Route: 048
  5. LEVETIRACETAM [Suspect]
     Active Substance: LEVETIRACETAM
     Indication: Epilepsy
     Dosage: UNK
     Route: 065
  6. URAPIDIL [Suspect]
     Active Substance: URAPIDIL
     Indication: Blood pressure abnormal
     Dosage: 10 MILLIGRAM INTRAVENOUS URADIPI
     Route: 042
  7. URAPIDIL [Suspect]
     Active Substance: URAPIDIL
     Indication: Heart rate abnormal
  8. URAPIDIL [Suspect]
     Active Substance: URAPIDIL
     Indication: Blood pressure increased
  9. MANNITOL [Suspect]
     Active Substance: MANNITOL
     Indication: Blood pressure abnormal
     Dosage: 100 MILLILITER
     Route: 042
  10. MANNITOL [Suspect]
     Active Substance: MANNITOL
     Indication: Heart rate abnormal
  11. METHYLDOPA [Suspect]
     Active Substance: METHYLDOPA
     Indication: Product used for unknown indication
     Dosage: 25 MILLIGRAM, TID
     Route: 048
  12. CLONAZEPAM [Suspect]
     Active Substance: CLONAZEPAM
     Indication: Epilepsy
     Dosage: UNK
     Route: 042
  13. NITROGLYCERIN [Suspect]
     Active Substance: NITROGLYCERIN
     Indication: Blood pressure abnormal
     Dosage: 5 MILLIGRAM, QD 5MG/24 H GLYCEROL TRINITRATE TRA
     Route: 062
  14. NITROGLYCERIN [Suspect]
     Active Substance: NITROGLYCERIN
     Indication: Heart rate abnormal
  15. METHYLDOPA [Suspect]
     Active Substance: METHYLDOPA
     Indication: Blood pressure abnormal
     Dosage: 25 MILLIGRAM, Q8H 3X25MG PER OS METHYLDOPA
     Route: 048
  16. METHYLDOPA [Suspect]
     Active Substance: METHYLDOPA
     Indication: Heart rate abnormal
  17. OXYGEN [Concomitant]
     Active Substance: OXYGEN
     Dosage: 7 L/MIN OXYGEN VIA NASOGASTRIC TUBE
     Route: 065

REACTIONS (6)
  - Hallucination [Recovered/Resolved]
  - Agitation [Recovered/Resolved]
  - Aphasia [Recovered/Resolved]
  - Posterior reversible encephalopathy syndrome [Recovered/Resolved]
  - Drug ineffective [Unknown]
  - Maternal exposure during pregnancy [Recovered/Resolved]
